FAERS Safety Report 8447774-0 (Version None)
Quarter: 2012Q2

REPORT INFORMATION
  Report Type: 
  Country: None (occurrence: None)
  Receive Date: 20120619
  Receipt Date: 20120609
  Transmission Date: 20120825
  Serious: Yes (Hospitalization)
  Sender: FDA-Public Use
  Company Number: US-BAYER-2010-008020

PATIENT
  Age: 23 Year
  Sex: Female
  Weight: 70.295 kg

DRUGS (6)
  1. TIZANIDINE HYDROCHLORIDE [Concomitant]
  2. YASMIN [Suspect]
     Dosage: UNK
     Dates: start: 20080801
  3. YASMIN [Suspect]
     Dosage: UNK
     Dates: start: 20040427
  4. LORTAB [Concomitant]
  5. YASMIN [Suspect]
     Dosage: UNK
     Dates: start: 20040524
  6. MELOXICAM [Concomitant]

REACTIONS (3)
  - CHOLECYSTITIS CHRONIC [None]
  - PAIN [None]
  - GALLBLADDER DISORDER [None]
